FAERS Safety Report 11750365 (Version 1)
Quarter: 2015Q4

REPORT INFORMATION
  Report Type: Spontaneous
  Country: US (occurrence: US)
  Receive Date: 20151118
  Receipt Date: 20151118
  Transmission Date: 20160304
  Serious: No
  Sender: FDA-Public Use
  Company Number: US-EISAI MEDICAL RESEARCH-EC-2015-011988

PATIENT
  Age: 40 Year
  Sex: Female
  Weight: 85.3 kg

DRUGS (2)
  1. BELVIQ [Suspect]
     Active Substance: LORCASERIN HYDROCHLORIDE
     Indication: OBESITY
     Route: 048
     Dates: start: 20151020, end: 20151112
  2. LOESTRIN NOS [Concomitant]
     Active Substance: ETHINYL ESTRADIOL\NORETHINDRONE ACETATE
     Indication: CONTRACEPTION
     Dosage: 1/20 MG-MCG
     Route: 048

REACTIONS (2)
  - Food craving [Recovered/Resolved]
  - Binge eating [Recovered/Resolved]

NARRATIVE: CASE EVENT DATE: 20151020
